FAERS Safety Report 16575537 (Version 2)
Quarter: 2019Q3

REPORT INFORMATION
  Report Type: Report from Study
  Country: CO (occurrence: CO)
  Receive Date: 20190716
  Receipt Date: 20190725
  Transmission Date: 20191004
  Serious: Yes (Other)
  Sender: FDA-Public Use
  Company Number: CO-TAKEDA-2019TUS042598

PATIENT
  Age: 41 Year
  Sex: Male
  Weight: 78 kg

DRUGS (2)
  1. LOSARTAN. [Concomitant]
     Active Substance: LOSARTAN
     Dosage: UNK
  2. VEDOLIZUMAB [Suspect]
     Active Substance: VEDOLIZUMAB
     Indication: CROHN^S DISEASE
     Dosage: 300 MILLIGRAM
     Route: 042
     Dates: start: 20190329

REACTIONS (4)
  - Sinusitis [Not Recovered/Not Resolved]
  - Off label use [Unknown]
  - Nephrolithiasis [Recovered/Resolved]
  - Catheter removal [Not Recovered/Not Resolved]

NARRATIVE: CASE EVENT DATE: 20190708
